FAERS Safety Report 4370838-8 (Version None)
Quarter: 2004Q2

REPORT INFORMATION
  Report Type: 
  Country: None (occurrence: None)
  Receive Date: 20040602
  Receipt Date: 20040602
  Transmission Date: 20050107
  Serious: Yes (Other)
  Sender: FDA-Public Use
  Company Number: None

PATIENT
  Age: 81 Year
  Sex: Male
  Weight: 102.9 kg

DRUGS (1)
  1. AMANTADINE HCL [Suspect]

REACTIONS (1)
  - ANGIONEUROTIC OEDEMA [None]
